FAERS Safety Report 7077413-5 (Version None)
Quarter: 2010Q4

REPORT INFORMATION
  Report Type: 
  Country: None (occurrence: None)
  Receive Date: 20101029
  Receipt Date: 20101029
  Transmission Date: 20110411
  Serious: Yes (Other)
  Sender: FDA-Public Use
  Company Number: None

PATIENT
  Age: 73 Year
  Sex: Female
  Weight: 68.0396 kg

DRUGS (1)
  1. CIPROFLAXACIN 500 MG [Suspect]
     Indication: CYSTITIS
     Dosage: 2 DAILY PO
     Route: 048
     Dates: start: 20101007, end: 20101014

REACTIONS (3)
  - ARTHRALGIA [None]
  - MOBILITY DECREASED [None]
  - MUSCULAR WEAKNESS [None]
